FAERS Safety Report 8614597-9 (Version None)
Quarter: 2012Q3

REPORT INFORMATION
  Report Type: 
  Country: None (occurrence: None)
  Receive Date: 20120823
  Receipt Date: 20120821
  Transmission Date: 20120928
  Serious: Yes (Death)
  Sender: FDA-Public Use
  Company Number: PHEH2012US016402

PATIENT
  Sex: Male
  Weight: 79.365 kg

DRUGS (4)
  1. FLOMAX [Concomitant]
     Dosage: 0.4 MG, UNK
  2. EXJADE [Suspect]
     Indication: IRON OVERLOAD
     Dosage: 2000 MG, UNK
     Route: 048
  3. CARDURA [Concomitant]
     Dosage: 02 MG, UNK
  4. FINASTERIDE [Concomitant]
     Dosage: 05 MG, UNK

REACTIONS (1)
  - DEATH [None]
